FAERS Safety Report 14471194 (Version 2)
Quarter: 2018Q3

REPORT INFORMATION
  Report Type: Spontaneous
  Country: FR (occurrence: FR)
  Receive Date: 20180131
  Receipt Date: 20180827
  Transmission Date: 20181010
  Serious: Yes (Other)
  Sender: FDA-Public Use
  Company Number: FR-PFIZER INC-2018033765

PATIENT
  Age: 73 Year
  Sex: Male
  Weight: 60 kg

DRUGS (20)
  1. IMOVANE [Concomitant]
     Active Substance: ZOPICLONE
     Dosage: UNK
  2. GEMCITABINE HYDROCHLORIDE. [Suspect]
     Active Substance: GEMCITABINE HYDROCHLORIDE
     Indication: ADRENAL GLAND CANCER METASTATIC
     Dosage: 1600 MG, 1X/DAY
     Route: 042
     Dates: start: 20171113, end: 20171220
  3. ZOPHREN /00955302/ [Concomitant]
     Active Substance: ONDANSETRON
     Dosage: UNK
  4. TARDYFERON [Concomitant]
     Active Substance: FERROUS SULFATE
     Dosage: UNK
  5. HYDROCORTISONE. [Concomitant]
     Active Substance: HYDROCORTISONE
     Dosage: UNK
  6. EUPRESSYL /00631802/ [Concomitant]
     Active Substance: URAPIDIL HYDROCHLORIDE
     Dosage: UNK
  7. SERESTA [Concomitant]
     Active Substance: OXAZEPAM
     Dosage: UNK
  8. METOPIRONE [Concomitant]
     Active Substance: METYRAPONE
     Dosage: UNK
  9. INEXIUM /01479302/ [Concomitant]
     Active Substance: ESOMEPRAZOLE MAGNESIUM
     Dosage: UNK
  10. INNOHEP [Concomitant]
     Active Substance: TINZAPARIN SODIUM
     Dosage: UNK
  11. SPIRONOLACTONE. [Concomitant]
     Active Substance: SPIRONOLACTONE
     Dosage: UNK
  12. XELODA [Suspect]
     Active Substance: CAPECITABINE
     Indication: ADRENAL GLAND CANCER METASTATIC
     Dosage: 1059 MG, 1X/DAY
     Route: 048
     Dates: start: 20171113, end: 20171220
  13. PHOSPHONEUROS [Concomitant]
     Active Substance: CALCIUM PHOSPHATE, DIBASIC, ANHYDROUS\MAGNESIUM GLYCEROPHOSPHATE\PHOSPHORIC ACID\SODIUM PHOSPHATE, DIBASIC
     Dosage: UNK
  14. ESCITALOPRAM [Concomitant]
     Active Substance: ESCITALOPRAM OXALATE
     Dosage: UNK
  15. DIFFU K [Concomitant]
     Active Substance: POTASSIUM CHLORIDE
     Dosage: UNK
  16. CACIT /07357001/ [Concomitant]
     Active Substance: CALCIUM\VITAMIN D
     Dosage: UNK
  17. LYSODREN [Concomitant]
     Active Substance: MITOTANE
     Dosage: UNK
  18. CREON [Concomitant]
     Active Substance: PANCRELIPASE AMYLASE\PANCRELIPASE LIPASE\PANCRELIPASE PROTEASE
     Dosage: UNK
  19. ARANESP [Concomitant]
     Active Substance: DARBEPOETIN ALFA
     Dosage: UNK
  20. PRIMPERAN [Concomitant]
     Active Substance: METOCLOPRAMIDE HYDROCHLORIDE
     Dosage: UNK

REACTIONS (1)
  - Bicytopenia [Recovering/Resolving]

NARRATIVE: CASE EVENT DATE: 20171217
